FAERS Safety Report 9102983 (Version 2)
Quarter: 2013Q2

REPORT INFORMATION
  Report Type: Spontaneous
  Country: ES (occurrence: ES)
  Receive Date: 20130219
  Receipt Date: 20130528
  Transmission Date: 20140414
  Serious: Yes (Hospitalization, Other)
  Sender: FDA-Public Use
  Company Number: ES-PFIZER INC-2013061462

PATIENT
  Age: 75 Year
  Sex: Male

DRUGS (6)
  1. TRANGOREX [Suspect]
     Indication: ATRIAL FIBRILLATION
     Dosage: 200 MG, DAILY
     Route: 048
     Dates: start: 200908
  2. DIGOXIN [Concomitant]
     Dosage: 0.75 MG, WEEKLY
     Route: 048
     Dates: start: 201107
  3. CARVEDILOL [Concomitant]
     Dosage: 13 MG, DAILY
     Route: 048
  4. SEGURIL [Concomitant]
     Dosage: 80 MG, DAILY
     Route: 048
  5. COLEMIN [Concomitant]
     Dosage: 20 MG, DAILY
     Route: 048
     Dates: start: 200711
  6. ANAGASTRA [Concomitant]
     Dosage: 200 MG, DAILY
     Route: 048
     Dates: start: 200905, end: 20120807

REACTIONS (7)
  - Hyperthyroidism [Unknown]
  - Cerebral haematoma [Unknown]
  - Hemiparesis [Unknown]
  - Hypoaesthesia [Unknown]
  - Dysarthria [Unknown]
  - Confusional state [Unknown]
  - Gait disturbance [Unknown]
